FAERS Safety Report 4434935-0 (Version None)
Quarter: 2004Q3

REPORT INFORMATION
  Report Type: 
  Country: None (occurrence: None)
  Receive Date: 20040726
  Receipt Date: 20040514
  Transmission Date: 20050211
  Serious: No
  Sender: FDA-Public Use
  Company Number: USA040567178

PATIENT
  Age: 80 Year
  Sex: Female
  Weight: 49 kg

DRUGS (6)
  1. FORTEO [Suspect]
     Indication: OSTEOPOROSIS
     Dosage: 20 UG/1 DAY
     Dates: start: 20040501
  2. COUMADIN [Concomitant]
  3. VERAPAMIL [Concomitant]
  4. DIGOXIN [Concomitant]
  5. LIPITOR [Concomitant]
  6. LASIX [Concomitant]

REACTIONS (2)
  - PAIN IN EXTREMITY [None]
  - STOMACH DISCOMFORT [None]
